FAERS Safety Report 23699865 (Version 1)
Quarter: 2024Q2

REPORT INFORMATION
  Report Type: Spontaneous
  Country: GE (occurrence: None)
  Receive Date: 20240403
  Receipt Date: 20240403
  Transmission Date: 20240716
  Serious: Yes (Other)
  Sender: FDA-Public Use
  Company Number: GE-ROCHE-3532530

PATIENT
  Age: 58 Year
  Sex: Female

DRUGS (3)
  1. TECENTRIQ [Suspect]
     Active Substance: ATEZOLIZUMAB
     Indication: Small cell lung cancer
     Dosage: ON 21/FEB/2024, RECEIVED THE THIRD COURSE, ON 19/MAR/2024, RECEIVED THE FOURTH COURSE
     Route: 065
     Dates: start: 20231205
  2. CARBOPLATIN [Suspect]
     Active Substance: CARBOPLATIN
     Indication: Small cell lung cancer
     Dosage: ON 31/JAN/2024, SECOND COURSE OF CARBOPLATIN WAS RECEIVED, ON 21/FEB/2024, RECEIVED THE THIRD COURSE
     Route: 065
     Dates: start: 20231205
  3. ETOPOSIDE [Suspect]
     Active Substance: ETOPOSIDE
     Indication: Small cell lung cancer
     Dosage: ON 31/JAN/2024, SECOND COURSE OF ETOPOSIDE WAS RECEIVED, ON 21/FEB/2024, RECEIVED THE THIRD COURSE,
     Route: 065
     Dates: start: 20231205

REACTIONS (3)
  - Bronchiolitis [Recovered/Resolved]
  - C-reactive protein increased [Unknown]
  - Body temperature increased [Unknown]

NARRATIVE: CASE EVENT DATE: 20231205
